FAERS Safety Report 10257880 (Version 2)
Quarter: 2014Q3

REPORT INFORMATION
  Report Type: Spontaneous
  Country: DK (occurrence: AT)
  Receive Date: 20140625
  Receipt Date: 20140717
  Transmission Date: 20150326
  Serious: Yes (Life-Threatening, Hospitalization)
  Sender: FDA-Public Use
  Company Number: AT-FRI-1000068460

PATIENT
  Age: 43 Year
  Sex: Female
  Weight: 62 kg

DRUGS (1)
  1. ESCITALOPRAM [Suspect]
     Active Substance: ESCITALOPRAM OXALATE
     Indication: DEPRESSION
     Dosage: 10 MG
     Route: 048
     Dates: start: 20140526, end: 20140607

REACTIONS (8)
  - Convulsion [Recovered/Resolved]
  - Hyponatraemia [Recovered/Resolved]
  - Dysarthria [Recovering/Resolving]
  - Extensor plantar response [Recovered/Resolved]
  - Inappropriate antidiuretic hormone secretion [Not Recovered/Not Resolved]
  - Gait disturbance [Recovering/Resolving]
  - Nystagmus [Recovered/Resolved]
  - Coma [Recovered/Resolved]

NARRATIVE: CASE EVENT DATE: 201406
